FAERS Safety Report 5468524-6 (Version None)
Quarter: 2007Q3

REPORT INFORMATION
  Report Type: 
  Country: None (occurrence: None)
  Receive Date: 20070926
  Receipt Date: 20070816
  Transmission Date: 20080115
  Serious: No
  Sender: FDA-Public Use
  Company Number: US-BRISTOL-MYERS SQUIBB COMPANY-13880513

PATIENT
  Age: 74 Year
  Sex: Female
  Weight: 63 kg

DRUGS (8)
  1. ORENCIA [Suspect]
     Indication: RHEUMATOID ARTHRITIS
     Dates: start: 20070407
  2. METHOTREXATE BRAND UNKNOWN [Concomitant]
  3. PREDNISONE [Concomitant]
  4. ATENOLOL [Concomitant]
  5. CENTRUM [Concomitant]
  6. CITRACAL [Concomitant]
  7. FOLIC ACID [Concomitant]
  8. ASPIRIN [Concomitant]

REACTIONS (4)
  - DIZZINESS [None]
  - HEADACHE [None]
  - MALAISE [None]
  - URTICARIA [None]
